FAERS Safety Report 4481432-2 (Version None)
Quarter: 2004Q3

REPORT INFORMATION
  Report Type: 
  Country: None (occurrence: None)
  Receive Date: 20040923
  Receipt Date: 20040726
  Transmission Date: 20050211
  Serious: No
  Sender: FDA-Public Use
  Company Number: USA040773473

PATIENT
  Age: 76 Year
  Sex: Female
  Weight: 54 kg

DRUGS (7)
  1. FORTEO [Suspect]
     Indication: OSTEOPOROSIS
     Dosage: 20 UG/1 DAY
     Dates: start: 20040720
  2. EFFEXOR [Concomitant]
  3. DOXEPIN HCL [Concomitant]
  4. NEXIUM [Concomitant]
  5. PLAVIX [Concomitant]
  6. ASPIRIN [Concomitant]
  7. CALCIUM WITH VITAMIN D [Concomitant]

REACTIONS (4)
  - ARTHRALGIA [None]
  - FATIGUE [None]
  - FEELING ABNORMAL [None]
  - PAIN [None]
